FAERS Safety Report 19793579 (Version 1)
Quarter: 2021Q3

REPORT INFORMATION
  Report Type: Spontaneous
  Country: CN (occurrence: CN)
  Receive Date: 20210906
  Receipt Date: 20210906
  Transmission Date: 20211014
  Serious: Yes (Hospitalization, Other)
  Sender: FDA-Public Use
  Company Number: CN-PFIZER INC-202101119731

PATIENT
  Age: 15 Year
  Sex: Male
  Weight: 39 kg

DRUGS (1)
  1. METHOTREXATE SODIUM. [Suspect]
     Active Substance: METHOTREXATE SODIUM
     Indication: BONE SARCOMA
     Dosage: 13 G, 1X/DAY
     Route: 041
     Dates: start: 20210811, end: 20210811

REACTIONS (2)
  - Drug-induced liver injury [Recovering/Resolving]
  - Liver injury [Recovering/Resolving]

NARRATIVE: CASE EVENT DATE: 20210812
